FAERS Safety Report 8022877-3 (Version None)
Quarter: 2012Q1

REPORT INFORMATION
  Report Type: 
  Country: None (occurrence: None)
  Receive Date: 20120104
  Receipt Date: 20111227
  Transmission Date: 20120608
  Serious: Yes (Other)
  Sender: FDA-Public Use
  Company Number: US-ROCHE-1014628

PATIENT
  Sex: Female
  Weight: 64.922 kg

DRUGS (15)
  1. OMALIZUMAB [Suspect]
     Dosage: LAST DOSE ADMINISTERED ON 26 SEPTEMBER 2011
     Route: 058
     Dates: start: 20110830
  2. XOPENEX [Concomitant]
     Indication: ASTHMA
  3. ACETAMINOPHEN [Concomitant]
     Indication: HEADACHE
  4. SINGULAIR [Concomitant]
     Indication: ASTHMA
  5. ZYRTEC [Concomitant]
     Indication: HYPERSENSITIVITY
  6. IBUPROFEN [Concomitant]
     Indication: HEADACHE
  7. PULMICORT [Concomitant]
     Indication: ASTHMA
  8. COLACE [Concomitant]
     Indication: CONSTIPATION
  9. PREVACID [Concomitant]
     Indication: GASTROOESOPHAGEAL REFLUX DISEASE
  10. OMALIZUMAB [Suspect]
     Route: 058
     Dates: start: 20110926
  11. METROGEL [Concomitant]
     Indication: ROSACEA
  12. RHINOCORT [Concomitant]
     Indication: HYPERSENSITIVITY
  13. OMALIZUMAB [Suspect]
     Indication: ASTHMA
     Dosage: TOTAL 63 MONTHS OF THERAPY RECEIVED
     Route: 058
     Dates: start: 20060901
  14. OMALIZUMAB [Suspect]
     Route: 058
     Dates: start: 20111205
  15. LASTACAFT [Concomitant]
     Indication: ROSACEA

REACTIONS (2)
  - MATERNAL EXPOSURE DURING PREGNANCY [None]
  - ABORTION SPONTANEOUS [None]
